FAERS Safety Report 24668503 (Version 2)
Quarter: 2024Q4

REPORT INFORMATION
  Report Type: Report from Study
  Country: US (occurrence: US)
  Receive Date: 20241127
  Receipt Date: 20241212
  Transmission Date: 20250115
  Serious: Yes (Hospitalization)
  Sender: Unknown Manufacturer
  Company Number: US-MTPC-MTDA2024-0024037

PATIENT
  Sex: Female

DRUGS (2)
  1. RADICAVA ORS [Suspect]
     Active Substance: EDARAVONE
     Indication: Amyotrophic lateral sclerosis
     Dosage: 105 MG/5 ML, QD FOR 10 DAYS OF 14 THEN 14 OFF
     Route: 048
     Dates: start: 20240918
  2. RADICAVA ORS [Suspect]
     Active Substance: EDARAVONE
     Indication: Amyotrophic lateral sclerosis
     Dosage: 105 MG/5 ML, QD FOR 10 DAYS OF 14 THEN 14 OFF
     Route: 048
     Dates: start: 20240918

REACTIONS (1)
  - Asthma [Unknown]
